FAERS Safety Report 24877415 (Version 1)
Quarter: 2025Q1

REPORT INFORMATION
  Report Type: Spontaneous
  Country: US (occurrence: US)
  Receive Date: 20250123
  Receipt Date: 20250123
  Transmission Date: 20250408
  Serious: No
  Sender: PAREXEL
  Company Number: US-NAPO PHARMACEUTICALS-2024US000083

PATIENT

DRUGS (6)
  1. MYTESI [Suspect]
     Active Substance: CROFELEMER
     Indication: HIV infection
     Dosage: 125 MG, BID
     Route: 048
     Dates: start: 202305
  2. UPTRAVI [Concomitant]
     Active Substance: SELEXIPAG
     Indication: Product used for unknown indication
  3. UPTRAVI [Concomitant]
     Active Substance: SELEXIPAG
  4. UPTRAVI [Concomitant]
     Active Substance: SELEXIPAG
  5. ADCIRCA [Concomitant]
     Active Substance: TADALAFIL
     Indication: Product used for unknown indication
  6. OPSUMIT [Concomitant]
     Active Substance: MACITENTAN
     Indication: Product used for unknown indication

REACTIONS (6)
  - Dizziness [Unknown]
  - Hypotension [Unknown]
  - Flushing [Unknown]
  - Dyspnoea [Unknown]
  - Confusional state [Unknown]
  - Off label use [Unknown]
